FAERS Safety Report 19874737 (Version 4)
Quarter: 2021Q3

REPORT INFORMATION
  Report Type: Spontaneous
  Country: US (occurrence: US)
  Receive Date: 20210922
  Receipt Date: 20210930
  Transmission Date: 20211014
  Serious: Yes (Other)
  Sender: FDA-Public Use
  Company Number: US-BEH-2021136140

PATIENT
  Age: 47 Year
  Sex: Female
  Weight: 58.2 kg

DRUGS (9)
  1. ACETAMINOPHEN. [Concomitant]
     Active Substance: ACETAMINOPHEN
     Indication: PREMEDICATION
     Dosage: 650 MILLIGRAM, SINGLE
     Route: 048
     Dates: start: 20210907
  2. DIPHENHYDRAMINE. [Concomitant]
     Active Substance: DIPHENHYDRAMINE
     Indication: PREMEDICATION
     Dosage: 25 MILLIGRAM, SINGLE
     Route: 048
     Dates: start: 20210907
  3. PRIVIGEN [Suspect]
     Active Substance: HUMAN IMMUNOGLOBULIN G
     Indication: PROPHYLAXIS AGAINST TRANSPLANT REJECTION
     Dosage: 50 GRAM
     Route: 041
     Dates: start: 20210907, end: 20210907
  4. PRIVIGEN [Suspect]
     Active Substance: HUMAN IMMUNOGLOBULIN G
     Dosage: UNK
     Route: 065
     Dates: start: 20210722
  5. PRIVIGEN [Suspect]
     Active Substance: HUMAN IMMUNOGLOBULIN G
     Dosage: UNK
     Route: 065
     Dates: start: 20210812
  6. PRIVIGEN [Suspect]
     Active Substance: HUMAN IMMUNOGLOBULIN G
     Dosage: 50 GRAM (1 OF 2 DOSE)
     Route: 065
     Dates: start: 20210902, end: 20210902
  7. METHYLPREDNISOLONE. [Concomitant]
     Active Substance: METHYLPREDNISOLONE
     Indication: PREMEDICATION
     Dosage: 40 MILLIGRAM, SINGLE
     Route: 042
     Dates: start: 20210907
  8. RITUXAN [Concomitant]
     Active Substance: RITUXIMAB
     Route: 065
  9. PRIVIGEN [Suspect]
     Active Substance: HUMAN IMMUNOGLOBULIN G
     Dosage: 50 GRAM (2 OF 2)
     Route: 065
     Dates: start: 20210902, end: 20210902

REACTIONS (5)
  - Rash [Unknown]
  - Pruritus [Unknown]
  - Off label use [Unknown]
  - No adverse event [Unknown]
  - Erythema [Unknown]

NARRATIVE: CASE EVENT DATE: 20210907
